FAERS Safety Report 7372943-0 (Version None)
Quarter: 2011Q1

REPORT INFORMATION
  Report Type: 
  Country: None (occurrence: None)
  Receive Date: 20110311
  Receipt Date: 20110225
  Transmission Date: 20110831
  Serious: Yes (Other)
  Sender: FDA-Public Use
  Company Number: 2011SP009108

PATIENT
  Age: 2 Year
  Sex: Male
  Weight: 3.13 kg

DRUGS (3)
  1. DULERA TABLET [Suspect]
     Indication: PRODUCT USED FOR UNKNOWN INDICATION
     Dosage: 200 MG, QD, INH
     Route: 055
     Dates: start: 20101229
  2. ALBUTEROL [Concomitant]
  3. NASONEX [Concomitant]

REACTIONS (4)
  - ABNORMAL BEHAVIOUR [None]
  - OFF LABEL USE [None]
  - AGGRESSION [None]
  - SLEEP DISORDER [None]
